FAERS Safety Report 16332991 (Version 1)
Quarter: 2019Q2

REPORT INFORMATION
  Report Type: Spontaneous
  Country: US (occurrence: US)
  Receive Date: 20190520
  Receipt Date: 20190520
  Transmission Date: 20190711
  Serious: Yes (Other)
  Sender: FDA-Public Use
  Company Number: US-GUERBET-US-20190111

PATIENT
  Age: 16 Year
  Sex: Male

DRUGS (10)
  1. RUFINAMIDE [Concomitant]
     Active Substance: RUFINAMIDE
     Indication: EPILEPSY
     Route: 065
  2. OXCARBAZEPINE. [Concomitant]
     Active Substance: OXCARBAZEPINE
     Indication: EPILEPSY
     Route: 065
  3. SUCCINYLCHOLINE [Concomitant]
     Active Substance: SUCCINYLCHOLINE
     Indication: GENERAL ANAESTHESIA
     Route: 065
  4. LIPIODOL [Suspect]
     Active Substance: ETHIODIZED OIL
     Indication: THERAPEUTIC EMBOLISATION
     Dosage: 1:1 GLUE (HISTOACRYL (N-BUTYL CYANOACRYLATE) AND LIPIODOL (ETHIODIZED OIL)) MIXTURE.
     Route: 050
  5. HISTOACRYL [Suspect]
     Active Substance: ENBUCRILATE
     Indication: THERAPEUTIC EMBOLISATION
     Dosage: 1:1 GLUE (HISTOACRYL (N-BUTYL CYANOACRYLATE) AND LIPIODOL (ETHIODIZED OIL)) MIXTURE.
     Route: 050
  6. HYDROMORPHONE [Concomitant]
     Active Substance: HYDROMORPHONE
     Indication: GENERAL ANAESTHESIA
     Route: 042
  7. ABSOLUTE ETHANOL [Concomitant]
     Indication: THERAPEUTIC EMBOLISATION
     Route: 013
  8. ZONISAMIDE. [Concomitant]
     Active Substance: ZONISAMIDE
     Indication: EPILEPSY
     Route: 065
  9. PROPOFOL. [Concomitant]
     Active Substance: PROPOFOL
     Indication: GENERAL ANAESTHESIA
     Route: 042
  10. DEXMEDETOMIDINE. [Concomitant]
     Active Substance: DEXMEDETOMIDINE
     Indication: GENERAL ANAESTHESIA
     Dosage: DEXMEDETOMIDINE WAS USED AS AN ADJUNCT TO THE ANESTHETIC AFTER A 0.3 UG/KG BOLUS
     Route: 042

REACTIONS (2)
  - Accelerated idioventricular rhythm [Recovered/Resolved]
  - Product use in unapproved indication [Recovered/Resolved]
